FAERS Safety Report 6860226-4 (Version None)
Quarter: 2010Q3

REPORT INFORMATION
  Report Type: 
  Country: None (occurrence: None)
  Receive Date: 20100720
  Receipt Date: 20100706
  Transmission Date: 20110219
  Serious: Yes (Hospitalization, Other)
  Sender: FDA-Public Use
  Company Number: PHHY2010HK44625

PATIENT
  Age: 42 Year
  Sex: Male

DRUGS (4)
  1. CLOZAPINE [Suspect]
     Indication: SCHIZOPHRENIA
     Dosage: 500 MG, QD (50MG AT 5PM AND 450MG AT 8PM)
  2. CLOZAPINE [Suspect]
     Dosage: 100 MG, QD (50MG AT 5PM AND 50MG AT 8PM)
  3. CLOZAPINE [Suspect]
     Dosage: 300 MG, QD (50MG AT 5PM AND 250MG AT 8PM )
  4. ANTISEPTICS AND DISINFECTANTS [Concomitant]
     Route: 048

REACTIONS (14)
  - AGITATION [None]
  - ALTERED STATE OF CONSCIOUSNESS [None]
  - BLOOD CREATINE PHOSPHOKINASE INCREASED [None]
  - CONFUSIONAL STATE [None]
  - DELIRIUM [None]
  - DIET REFUSAL [None]
  - DRUG WITHDRAWAL SYNDROME [None]
  - FLUSHING [None]
  - HYPERHIDROSIS [None]
  - LEUKOCYTOSIS [None]
  - METABOLIC ACIDOSIS [None]
  - NEUROLEPTIC MALIGNANT SYNDROME [None]
  - RESTLESSNESS [None]
  - SALIVARY HYPERSECRETION [None]
